FAERS Safety Report 4583736-1 (Version None)
Quarter: 2005Q1

REPORT INFORMATION
  Report Type: 
  Country: None (occurrence: None)
  Receive Date: 20050216
  Receipt Date: 20040727
  Transmission Date: 20050727
  Serious: Yes (Other)
  Sender: FDA-Public Use
  Company Number: 200412856FR

PATIENT
  Age: 47 Year
  Sex: Female

DRUGS (1)
  1. ARAVA [Suspect]
     Indication: RHEUMATOID ARTHRITIS
     Route: 048
     Dates: start: 20020201, end: 20040726

REACTIONS (6)
  - EOSINOPHIL PERCENTAGE INCREASED [None]
  - EYELID OEDEMA [None]
  - FACE OEDEMA [None]
  - HYPEREOSINOPHILIC SYNDROME [None]
  - SELF-MEDICATION [None]
  - WHITE BLOOD CELL COUNT INCREASED [None]
